FAERS Safety Report 17371959 (Version 1)
Quarter: 2020Q1

REPORT INFORMATION
  Report Type: Report from Study
  Country: IL (occurrence: IL)
  Receive Date: 20200205
  Receipt Date: 20200205
  Transmission Date: 20200409
  Serious: Yes (Other)
  Sender: FDA-Public Use
  Company Number: IL-JNJFOC-20191043105

PATIENT
  Sex: Female

DRUGS (2)
  1. STELARA [Suspect]
     Active Substance: USTEKINUMAB
     Indication: CROHN^S DISEASE
     Route: 058
     Dates: start: 20190707
  2. MOXIPEN [Concomitant]

REACTIONS (6)
  - Fungal infection [Recovered/Resolved]
  - Crohn^s disease [Unknown]
  - Influenza [Recovering/Resolving]
  - Sensory disturbance [Not Recovered/Not Resolved]
  - Dysuria [Unknown]
  - Drug ineffective [Unknown]

NARRATIVE: CASE EVENT DATE: 2019
